FAERS Safety Report 18122625 (Version 11)
Quarter: 2024Q2

REPORT INFORMATION
  Report Type: Spontaneous
  Country: CA (occurrence: CA)
  Receive Date: 20200807
  Receipt Date: 20240404
  Transmission Date: 20240716
  Serious: Yes (Hospitalization)
  Sender: FDA-Public Use
  Company Number: CA-TEVA-2020-CA-1810074

PATIENT
  Age: 11 Year
  Sex: Male

DRUGS (28)
  1. ARIPIPRAZOLE [Suspect]
     Active Substance: ARIPIPRAZOLE
     Indication: Child abuse
     Dosage: TIME INTERVAL: 0.333 DAYS: DOSAGE TEXT: ADMINISTERED THREE TIMES DAILY
     Route: 048
  2. CLONIDINE [Suspect]
     Active Substance: CLONIDINE
     Indication: Child abuse
     Dosage: DOSAGE TEXT: DOSE: 0.05MG EVERY MORNING AND 0.1 MG EVERY EVENING
     Route: 048
  3. DIPHENHYDRAMINE [Suspect]
     Active Substance: DIPHENHYDRAMINE
     Indication: Child abuse
     Dosage: DOSAGE TEXT: ADMINISTERED EVERY 6 HOURS AS REQUIRED
     Route: 048
  4. FLUOXETINE [Suspect]
     Active Substance: FLUOXETINE HYDROCHLORIDE
     Indication: Child abuse
     Route: 048
  5. GABAPENTIN [Suspect]
     Active Substance: GABAPENTIN
     Indication: Child abuse
     Dosage: TIME INTERVAL: 0.333 DAYS: DOSAGE TEXT: ADMINISTERED THREE TIMES DAILY
     Route: 048
     Dates: start: 2016
  6. HYDROXYCHLOROQUINE [Suspect]
     Active Substance: HYDROXYCHLOROQUINE
     Indication: Child abuse
     Route: 048
  7. KETOROLAC [Suspect]
     Active Substance: KETOROLAC TROMETHAMINE
     Indication: Child abuse
     Dosage: DOSAGE TEXT: ADMINISTERED EVERY 6 HOURS AS REQUIRED
     Route: 048
  8. LEUPROLIDE ACETATE [Suspect]
     Active Substance: ISOPROPYL ALCOHOL\LEUPROLIDE ACETATE
     Indication: Child abuse
     Route: 030
  9. LORAZEPAM [Suspect]
     Active Substance: LORAZEPAM
     Indication: Child abuse
     Dosage: DOSAGE TEXT: DOSE: 0.5MG AND 2MG, AS REQUIRED
     Route: 060
     Dates: start: 2016
  10. MELATONIN [Suspect]
     Active Substance: MELATONIN
     Indication: Child abuse
     Dosage: DOSAGE TEXT: ADMINISTERED EVERY NIGHT
     Route: 048
  11. ACETAMINOPHEN\METHOCARBAMOL [Suspect]
     Active Substance: ACETAMINOPHEN\METHOCARBAMOL
     Indication: Child abuse
     Route: 048
     Dates: start: 2016
  12. METHADONE [Suspect]
     Active Substance: METHADONE HYDROCHLORIDE
     Indication: Child abuse
     Dosage: TIME INTERVAL: 0.333 DAYS: DOSAGE TEXT: ADMINISTERED THREE TIMES DAILY
     Route: 048
     Dates: start: 2016
  13. HYDROMORPHONE [Suspect]
     Active Substance: HYDROMORPHONE
     Indication: Child abuse
     Dosage: DOSAGE TEXT: IMMEDIATE RELEASE
     Route: 065
     Dates: start: 2016
  14. MONTELUKAST [Suspect]
     Active Substance: MONTELUKAST SODIUM
     Indication: Child abuse
     Route: 048
  15. DOCONEXENT\ ICOSAPENT\ FISH OIL\ OMEGA-3 FATTY ACIDS [Suspect]
     Active Substance: DOCONEXENT\ ICOSAPENT\ FISH OIL\ OMEGA-3 FATTY ACIDS
     Indication: Child abuse
     Dosage: DOSAGE TEXT: OMEGA 3-DHA-EPA-FISH OIL
     Route: 048
  16. PANTOPRAZOLE [Suspect]
     Active Substance: PANTOPRAZOLE
     Indication: Child abuse
     Route: 048
  17. PHENOBARBITAL [Suspect]
     Active Substance: PHENOBARBITAL
     Indication: Child abuse
     Route: 048
  18. POLYETHYLENE GLYCOL [Suspect]
     Active Substance: POLYETHYLENE GLYCOL
     Indication: Child abuse
     Route: 048
  19. RANITIDINE [Suspect]
     Active Substance: RANITIDINE
     Indication: Child abuse
     Route: 048
  20. ALBUTEROL SULFATE [Suspect]
     Active Substance: ALBUTEROL SULFATE
     Indication: Child abuse
     Dosage: DOSAGE TEXT: DOSE: 100MICROG PER ACTUATION; 2 PUFFS EVERY 4 HOURS AS REQUIRED
     Route: 055
  21. FLUTICASONE [Suspect]
     Active Substance: FLUTICASONE
     Indication: Child abuse
     Dosage: DOSAGE TEXT: DOSE: 250MICROG PER ACTUATION; 2 PUFFS DAILY
     Route: 055
  22. SODIUM ASCORBATE [Suspect]
     Active Substance: SODIUM ASCORBATE
     Indication: Product used for unknown indication
     Dosage: DOSAGE TEXT: ASCORBIC ACID-ASCORBATE SODIUM
     Route: 048
  23. CLOBAZAM [Suspect]
     Active Substance: CLOBAZAM
     Indication: Child abuse
     Route: 048
  24. DIMENHYDRINATE [Suspect]
     Active Substance: DIMENHYDRINATE
     Indication: Child abuse
     Dosage: DOSAGE TEXT: ADMINISTERED EVERY 6 HOURS AS REQUIRED
     Route: 048
  25. BACLOFEN [Suspect]
     Active Substance: BACLOFEN
     Indication: Child abuse
     Dosage: TIME INTERVAL: 0.333 DAYS: DOSAGE TEXT: ADMINISTERED THREE TIMES DAILY
     Route: 048
  26. BISACODYL [Suspect]
     Active Substance: BISACODYL
     Indication: Child abuse
     Dosage: DOSAGE TEXT: ADMINISTERED DAILY AS REQUIRED
     Route: 048
  27. CELECOXIB [Suspect]
     Active Substance: CELECOXIB
     Indication: Child abuse
     Route: 048
     Dates: start: 2016
  28. CHOLECALCIFEROL [Suspect]
     Active Substance: CHOLECALCIFEROL
     Indication: Child abuse
     Route: 048

REACTIONS (3)
  - Victim of child abuse [Unknown]
  - Drug dependence [Unknown]
  - Respiratory depression [Recovered/Resolved]
